FAERS Safety Report 5430989-3 (Version None)
Quarter: 2007Q3

REPORT INFORMATION
  Report Type: 
  Country: None (occurrence: None)
  Receive Date: 20070830
  Receipt Date: 20070823
  Transmission Date: 20080115
  Serious: Yes (Hospitalization)
  Sender: FDA-Public Use
  Company Number: B0476756A

PATIENT
  Age: 89 Year
  Sex: Female

DRUGS (6)
  1. AUGMENTIN '125' [Suspect]
     Indication: PNEUMONIA
     Dosage: 1G FOUR TIMES PER DAY
     Route: 042
     Dates: start: 20070501
  2. AMLODIPINE BESYLATE [Concomitant]
     Dosage: 5MG PER DAY
     Route: 048
  3. METOPROLOL SUCCINATE [Concomitant]
     Dosage: 200MG PER DAY
     Route: 065
  4. IRBESARTAN [Concomitant]
     Dosage: 300MG PER DAY
     Route: 065
  5. ASPIRIN [Concomitant]
     Indication: CARDIOMYOPATHY
     Route: 065
  6. LYSANXIA [Concomitant]
     Indication: ANXIETY
     Route: 065

REACTIONS (5)
  - ANOREXIA [None]
  - HEPATOTOXICITY [None]
  - JAUNDICE [None]
  - JAUNDICE CHOLESTATIC [None]
  - NAUSEA [None]
